FAERS Safety Report 9173615 (Version 2)
Quarter: 2013Q1

REPORT INFORMATION
  Report Type: Spontaneous
  Country: US (occurrence: None)
  Receive Date: 20130318
  Receipt Date: 20130322
  Transmission Date: 20140127
  Serious: Yes (Other)
  Sender: FDA-Public Use
  Company Number: None

PATIENT
  Age: 58 Year
  Sex: Female
  Weight: 95.26 kg

DRUGS (13)
  1. KENALOG-40 INJ [Suspect]
     Indication: BACK PAIN
     Dosage: 80MG/2ML  EPIDURAL
     Route: 008
  2. KENALOG-40 INJ [Suspect]
     Indication: INTERVERTEBRAL DISC DEGENERATION
     Dosage: 80MG/2ML  EPIDURAL
     Route: 008
  3. SYNTHROID [Concomitant]
  4. PREMARIN [Concomitant]
  5. BENICAR HCT [Concomitant]
  6. MOBIC [Concomitant]
  7. NEXIUM [Concomitant]
  8. ROBAXIN [Concomitant]
  9. ESGIC [Concomitant]
  10. ESTRACE [Concomitant]
  11. AMLODIPINE [Concomitant]
  12. NAPROXEN [Concomitant]
  13. PERCOCET [Concomitant]

REACTIONS (1)
  - Flushing [None]
